FAERS Safety Report 6822681-5 (Version None)
Quarter: 2010Q3

REPORT INFORMATION
  Report Type: 
  Country: None (occurrence: None)
  Receive Date: 20100708
  Receipt Date: 20100705
  Transmission Date: 20110219
  Serious: Yes (Other)
  Sender: FDA-Public Use
  Company Number: DE-PFIZER INC-2010083487

PATIENT
  Age: 30 Year
  Sex: Female

DRUGS (1)
  1. SOMAVERT [Suspect]
     Dosage: UNK

REACTIONS (4)
  - HEADACHE [None]
  - NECK PAIN [None]
  - NUCHAL RIGIDITY [None]
  - SLEEP DISORDER [None]
